FAERS Safety Report 9266263 (Version 1)
Quarter: 2013Q2

REPORT INFORMATION
  Report Type: Spontaneous
  Country: US (occurrence: US)
  Receive Date: 20130502
  Receipt Date: 20130502
  Transmission Date: 20140414
  Serious: No
  Sender: FDA-Public Use
  Company Number: US-009507513-1304USA017220

PATIENT
  Age: 67 Year
  Sex: Female

DRUGS (5)
  1. NASONEX [Suspect]
     Indication: NASAL CONGESTION
     Dosage: 4-6 SPRAYS DAILY IN EACH NOSTRIL
     Route: 045
     Dates: start: 2013
  2. NASONEX [Suspect]
     Dosage: ONE SPRAY IN EACH NOSTIL TWICE DAILY
     Route: 045
     Dates: end: 2013
  3. ATIVAN [Concomitant]
  4. ZOLPIDEM TARTRATE [Concomitant]
  5. LEVOTHYROXINE SODIUM [Concomitant]

REACTIONS (8)
  - Viral infection [Not Recovered/Not Resolved]
  - Pyrexia [Not Recovered/Not Resolved]
  - Drug ineffective [Not Recovered/Not Resolved]
  - Respiratory disorder [Not Recovered/Not Resolved]
  - Headache [Not Recovered/Not Resolved]
  - Cough [Not Recovered/Not Resolved]
  - Nasal congestion [Not Recovered/Not Resolved]
  - Incorrect dose administered [Unknown]
